FAERS Safety Report 9748543 (Version 1)
Quarter: 2013Q4

REPORT INFORMATION
  Report Type: Spontaneous
  Country: US (occurrence: None)
  Receive Date: 20131211
  Receipt Date: 20131211
  Transmission Date: 20140711
  Serious: Yes (Death)
  Sender: FDA-Public Use
  Company Number: None

PATIENT
  Age: 71 Year
  Sex: Female
  Weight: 88 kg

DRUGS (10)
  1. SITAGLIPTIN [Suspect]
     Indication: TYPE 2 DIABETES MELLITUS
     Dosage: ONE TABLET QD ORAL
     Route: 048
     Dates: start: 20100722, end: 20130331
  2. FLUTICASONE [Concomitant]
  3. PREDNISONE [Concomitant]
  4. AMLODIPINE [Concomitant]
  5. HUMULIN N [Concomitant]
  6. LATANAPROST [Concomitant]
  7. KTABS [Concomitant]
  8. OMEPRAZOLE [Concomitant]
  9. TRAMADOL [Concomitant]
  10. LISINOPRIL [Concomitant]

REACTIONS (2)
  - Ovarian cancer [None]
  - Pancreatic carcinoma [None]
